FAERS Safety Report 5488915-7 (Version None)
Quarter: 2007Q4

REPORT INFORMATION
  Report Type: 
  Country: None (occurrence: None)
  Receive Date: 20071016
  Receipt Date: 20070921
  Transmission Date: 20080405
  Serious: Yes (Life-Threatening, Hospitalization)
  Sender: FDA-Public Use
  Company Number: 2007VX002277

PATIENT
  Age: 68 Year
  Sex: Female
  Weight: 80 kg

DRUGS (4)
  1. FLURAZEPAM HYDROCHLORIDE [Suspect]
  2. MIRTAZAPINE [Suspect]
  3. LORAZEPAM [Suspect]
  4. TETESEPT HUSTENSAFT (TETESEPT HUSTENSAFT) [Suspect]

REACTIONS (3)
  - ASPIRATION [None]
  - MULTIPLE DRUG OVERDOSE [None]
  - SUICIDE ATTEMPT [None]
